FAERS Safety Report 8231874-4 (Version None)
Quarter: 2012Q1

REPORT INFORMATION
  Report Type: 
  Country: None (occurrence: None)
  Receive Date: 20120323
  Receipt Date: 20120315
  Transmission Date: 20120608
  Serious: Yes (Hospitalization)
  Sender: FDA-Public Use
  Company Number: PL-ROCHE-693171

PATIENT
  Sex: Female
  Weight: 52 kg

DRUGS (5)
  1. DOCETAXEL [Suspect]
     Indication: BREAST CANCER
     Dosage: FORM: VIALS, DOSE LEVLE: 75 MG/M2
     Route: 042
     Dates: start: 20100302, end: 20100302
  2. CARBOPLATIN [Suspect]
     Indication: BREAST CANCER
     Dosage: FORM: VIALS, DOSE LEVLE: 6 AUC
     Route: 042
     Dates: start: 20100302, end: 20100302
  3. ONDANSETRON [Concomitant]
     Dates: start: 20100302, end: 20100402
  4. DEXAMETHASONE [Suspect]
     Indication: PRODUCT USED FOR UNKNOWN INDICATION
     Route: 065
     Dates: start: 20100301, end: 20100303
  5. HERCEPTIN [Suspect]
     Indication: BREAST CANCER
     Dosage: DOSE LEVEL: 8 MG/KG, FORM: VIALS, LAST DOSE PRIOR TO SAE: 02 MAR 2010
     Route: 042
     Dates: start: 20100302, end: 20100302

REACTIONS (1)
  - DUODENAL ULCER [None]
